FAERS Safety Report 22745378 (Version 3)
Quarter: 2023Q4

REPORT INFORMATION
  Report Type: Spontaneous
  Country: JP (occurrence: JP)
  Receive Date: 20230725
  Receipt Date: 20231229
  Transmission Date: 20240110
  Serious: Yes (Hospitalization, Other)
  Sender: FDA-Public Use
  Company Number: JP-MTPC-MTPC2023-0019050

PATIENT
  Sex: Male

DRUGS (3)
  1. EDARAVONE [Suspect]
     Active Substance: EDARAVONE
     Indication: Amyotrophic lateral sclerosis
     Dosage: 5 MILLIGRAM, QD
     Route: 048
     Dates: start: 20230511, end: 202309
  2. EDARAVONE [Suspect]
     Active Substance: EDARAVONE
     Indication: Amyotrophic lateral sclerosis
     Dosage: 5 MILLIGRAM, QD
     Route: 048
     Dates: start: 20230511, end: 202309
  3. EDARAVONE [Concomitant]
     Active Substance: EDARAVONE
     Route: 051

REACTIONS (3)
  - Amyotrophic lateral sclerosis [Unknown]
  - Gastrostomy [Unknown]
  - Amyotrophic lateral sclerosis [Unknown]

NARRATIVE: CASE EVENT DATE: 20231001
